FAERS Safety Report 10771264 (Version 1)
Quarter: 2015Q1

REPORT INFORMATION
  Report Type: Spontaneous
  Country: US (occurrence: US)
  Receive Date: 20150206
  Receipt Date: 20150206
  Transmission Date: 20150721
  Serious: Yes (Other)
  Sender: FDA-Public Use
  Company Number: US-PFIZER INC-2015042295

PATIENT
  Sex: Female

DRUGS (39)
  1. EFFEXOR XR [Suspect]
     Active Substance: VENLAFAXINE HYDROCHLORIDE
     Dosage: 150 MG, 3X/DAY
     Route: 048
     Dates: start: 20141029
  2. COLASE [Concomitant]
     Indication: CONSTIPATION
     Dosage: 100 MG CAP 1 CAP, 2X/DAY
     Route: 048
     Dates: start: 20131127
  3. REMERON [Concomitant]
     Active Substance: MIRTAZAPINE
     Indication: PAIN
  4. VIVACTIL [Concomitant]
     Active Substance: PROTRIPTYLINE HYDROCHLORIDE
     Indication: FIBROMYALGIA
  5. VIVACTIL [Concomitant]
     Active Substance: PROTRIPTYLINE HYDROCHLORIDE
     Indication: MIGRAINE
  6. KEPPRA [Concomitant]
     Active Substance: LEVETIRACETAM
     Indication: PAIN
  7. ABILIFY [Concomitant]
     Active Substance: ARIPIPRAZOLE
     Indication: MIGRAINE
  8. WELLBUTRIN [Concomitant]
     Active Substance: BUPROPION HYDROCHLORIDE
     Indication: DEPRESSION
     Dosage: 75 MG TAB 1 TAB, 1X/DAY
     Route: 048
     Dates: start: 20150106, end: 201501
  9. PLAQUENIL [Concomitant]
     Active Substance: HYDROXYCHLOROQUINE SULFATE
     Indication: MIGRAINE
  10. SYNTHROID [Concomitant]
     Active Substance: LEVOTHYROXINE SODIUM
     Indication: HYPOTHYROIDISM
     Dosage: 100 ?G, DAILY (100 MCG TAB 1 TAB DAILY)
     Route: 048
     Dates: start: 20140910
  11. TOPAMAX [Concomitant]
     Active Substance: TOPIRAMATE
     Indication: MIGRAINE WITHOUT AURA
     Dosage: 37.5 MG (25 MG TAB 1.5 TABS), 2X/DAY
     Route: 048
     Dates: start: 20140924
  12. EFFEXOR XR [Suspect]
     Active Substance: VENLAFAXINE HYDROCHLORIDE
     Indication: DEPRESSION
     Dosage: UNK
     Route: 048
     Dates: start: 2009
  13. VITAMIN D2 [Concomitant]
     Active Substance: ERGOCALCIFEROL
     Indication: VITAMIN D DEFICIENCY
     Dosage: 50000 IU, WEEKLY (50000 UNIT CAP 1 CAP EVERY 7 DAYS)
     Route: 048
     Dates: start: 20140305
  14. VITAMIN D2 [Concomitant]
     Active Substance: ERGOCALCIFEROL
     Indication: MIGRAINE
  15. ATARAX [Concomitant]
     Active Substance: HYDROXYZINE\HYDROXYZINE HYDROCHLORIDE
     Indication: PRURITUS
     Dosage: 25 MG, AS NEEDED (25MG TAB 1 TAB EVERY 8 HOURS AS NEEDED)
     Route: 048
     Dates: start: 20140219
  16. KLONOPIN [Concomitant]
     Active Substance: CLONAZEPAM
     Indication: ANXIETY
     Dosage: 4 MG, DAILY (2 MG 2 TABS DAILY AT BEDTIME)
     Route: 048
     Dates: start: 20141029
  17. REMERON [Concomitant]
     Active Substance: MIRTAZAPINE
     Indication: DEPRESSION
     Dosage: 60 MG, 1X/DAY (30MG TAB 2 TAB DAILY AT BEDTIME)
     Route: 048
     Dates: start: 20150118
  18. IMITREX [Concomitant]
     Active Substance: SUMATRIPTAN\SUMATRIPTAN SUCCINATE
     Indication: MIGRAINE WITHOUT AURA
     Dosage: 1 DF (20MG NASAL SOLUTION 1 SPRAY TO 1 NOSTRIL ONCE) AS NEEDED
     Route: 045
     Dates: start: 20140514
  19. LYRICA [Concomitant]
     Active Substance: PREGABALIN
     Indication: MIGRAINE
     Dosage: UNK
  20. ABILIFY [Concomitant]
     Active Substance: ARIPIPRAZOLE
     Indication: PAIN
  21. REMERON [Concomitant]
     Active Substance: MIRTAZAPINE
     Indication: MIGRAINE
  22. ZOFRAN [Concomitant]
     Active Substance: ONDANSETRON HYDROCHLORIDE
     Indication: NAUSEA
     Dosage: 8 MG, AS NEEDED (8MG 1 TAB ON TONGUE AND LET DISSOLVE EVERY 12 HOURS AS NEEDED )
     Route: 048
     Dates: start: 20141015
  23. ZOFRAN [Concomitant]
     Active Substance: ONDANSETRON HYDROCHLORIDE
     Indication: MIGRAINE WITHOUT AURA
  24. PHENERGAN [Concomitant]
     Active Substance: PROMETHAZINE HYDROCHLORIDE
     Indication: NAUSEA
     Dosage: 25MG TAB 0.5-1 TAB EVERY 8 TO 12 HOURS AS NEEDED
     Route: 048
     Dates: start: 20140825
  25. VIVACTIL [Concomitant]
     Active Substance: PROTRIPTYLINE HYDROCHLORIDE
     Indication: DEPRESSION
  26. LYRICA [Concomitant]
     Active Substance: PREGABALIN
     Indication: PAIN
  27. KEPPRA [Concomitant]
     Active Substance: LEVETIRACETAM
     Indication: MIGRAINE
     Dosage: UNK
  28. EFFEXOR XR [Suspect]
     Active Substance: VENLAFAXINE HYDROCHLORIDE
     Dosage: 200 MG, UNK
     Route: 048
  29. PLAQUENIL [Concomitant]
     Active Substance: HYDROXYCHLOROQUINE SULFATE
     Indication: PAIN
  30. METHADOSE [Concomitant]
     Active Substance: METHADONE HYDROCHLORIDE
     Indication: PAIN
     Dosage: 5 MG, AS NEEDED (5MG TAB 1 TAB EVERY 12 HOURS AS NEEDED)
     Route: 048
     Dates: start: 20141231
  31. ABILIFY [Concomitant]
     Active Substance: ARIPIPRAZOLE
     Indication: DEPRESSION
     Dosage: 5 MG TAB 1 TAB, DAILY
     Route: 048
     Dates: start: 20141029
  32. WELLBUTRIN [Concomitant]
     Active Substance: BUPROPION HYDROCHLORIDE
     Dosage: 75 MG TAB 1 TAB, 2X/DAY
     Route: 048
     Dates: start: 201501
  33. PLAQUENIL [Concomitant]
     Active Substance: HYDROXYCHLOROQUINE SULFATE
     Indication: FIBROMYALGIA
     Dosage: 200 MG TAB 1 TAB, DAILY
     Route: 048
     Dates: start: 20140910
  34. VIVACTIL [Concomitant]
     Active Substance: PROTRIPTYLINE HYDROCHLORIDE
     Indication: MIGRAINE WITHOUT AURA
     Dosage: 10 MG, DAILY (10MG TAB 1 TAB DAILY AT BEDTIME)
     Route: 048
     Dates: start: 20140226
  35. VIVACTIL [Concomitant]
     Active Substance: PROTRIPTYLINE HYDROCHLORIDE
     Indication: PAIN
  36. VITAMIN D2 [Concomitant]
     Active Substance: ERGOCALCIFEROL
     Indication: PAIN
  37. METHADOSE [Concomitant]
     Active Substance: METHADONE HYDROCHLORIDE
     Indication: MIGRAINE WITHOUT AURA
  38. METHADOSE [Concomitant]
     Active Substance: METHADONE HYDROCHLORIDE
     Indication: MIGRAINE
  39. PHENERGAN [Concomitant]
     Active Substance: PROMETHAZINE HYDROCHLORIDE
     Indication: MIGRAINE WITHOUT AURA

REACTIONS (5)
  - Nausea [Unknown]
  - Upper limb fracture [Unknown]
  - Suicide attempt [Unknown]
  - Drug tolerance [Unknown]
  - Suicidal ideation [Unknown]
